FAERS Safety Report 7183816-0 (Version None)
Quarter: 2010Q4

REPORT INFORMATION
  Report Type: 
  Country: None (occurrence: None)
  Receive Date: 20101220
  Receipt Date: 20101220
  Transmission Date: 20110411
  Serious: Yes (Other)
  Sender: FDA-Public Use
  Company Number: None

PATIENT
  Sex: Female
  Weight: 77.1115 kg

DRUGS (1)
  1. SPRINTEC [Suspect]
     Indication: OVARIAN CYST
     Dosage: 1 TABLET DAILY PO  3 MONTHS FROM THIS PHARMA
     Route: 048
     Dates: start: 20100927, end: 20101219

REACTIONS (1)
  - METRORRHAGIA [None]
